FAERS Safety Report 24153114 (Version 1)
Quarter: 2024Q3

REPORT INFORMATION
  Report Type: Spontaneous
  Country: TR (occurrence: TR)
  Receive Date: 20240730
  Receipt Date: 20240730
  Transmission Date: 20241016
  Serious: Yes (Hospitalization)
  Sender: AMERICAN REGENT
  Company Number: TR-AMERICAN REGENT INC-2024002873

PATIENT
  Age: 28 Year
  Sex: Female
  Weight: 42 kg

DRUGS (1)
  1. FERINJECT [Suspect]
     Active Substance: FERRIC CARBOXYMALTOSE
     Indication: Iron deficiency anaemia
     Dosage: 2 VIALS (1000 MG) (1000 MG)
     Route: 042
     Dates: start: 20240705, end: 20240705

REACTIONS (6)
  - Ear swelling [Recovered/Resolved]
  - Swelling [Recovered/Resolved]
  - Erythema [Recovered/Resolved]
  - Pruritus [Recovered/Resolved]
  - Dyspnoea [Recovered/Resolved]
  - Hypotension [Recovered/Resolved]

NARRATIVE: CASE EVENT DATE: 20240705
